FAERS Safety Report 11512751 (Version 3)
Quarter: 2017Q3

REPORT INFORMATION
  Report Type: Spontaneous
  Country: CA (occurrence: CA)
  Receive Date: 20150916
  Receipt Date: 20170831
  Transmission Date: 20171127
  Serious: Yes (Hospitalization)
  Sender: FDA-Public Use
  Company Number: CA-CIPLA-2014CA00544

PATIENT

DRUGS (17)
  1. METOPROLOL. [Interacting]
     Active Substance: METOPROLOL
     Indication: CORONARY ARTERY DISEASE
     Dosage: 200 MG/DAY
     Route: 048
  2. ATORVASTATIN [Concomitant]
     Active Substance: ATORVASTATIN
     Dosage: 80 MG/DAY
     Route: 048
  3. DOMPERIDONE [Concomitant]
     Active Substance: DOMPERIDONE
     Dosage: 40 MG/DAY
     Route: 048
  4. ACETAMINOPHEN. [Concomitant]
     Active Substance: ACETAMINOPHEN
     Dosage: 1500 MG/DAY
     Route: 048
  5. CICLOPIROX. [Concomitant]
     Active Substance: CICLOPIROX
     Dosage: UNK
     Route: 061
  6. TERBINAFINE. [Suspect]
     Active Substance: TERBINAFINE
     Indication: ONYCHOMYCOSIS
     Dosage: 250 MG/DAY
     Route: 048
     Dates: start: 20090805
  7. METOPROLOL. [Interacting]
     Active Substance: METOPROLOL
     Dosage: 100 MG/DAY
     Route: 048
  8. TRANDOLAPRIL. [Concomitant]
     Active Substance: TRANDOLAPRIL
     Dosage: 2 MG/DAY
     Route: 048
  9. RIVASTIGMINE. [Suspect]
     Active Substance: RIVASTIGMINE
     Dosage: 3 MG/DAY, RESTARTED ON DAY 3
     Route: 065
  10. ACETYLSALICYLIC ACID [Concomitant]
     Active Substance: ASPIRIN
     Dosage: 80 MG/DAY
     Route: 048
  11. FUROSEMIDE. [Concomitant]
     Active Substance: FUROSEMIDE
     Dosage: 40 MG/DAY
     Route: 048
  12. POTASSIUM CHLORIDE. [Concomitant]
     Active Substance: POTASSIUM CHLORIDE
     Dosage: 24 MEQ/DAY
     Route: 048
  13. RIVASTIGMINE. [Suspect]
     Active Substance: RIVASTIGMINE
     Indication: DEMENTIA ALZHEIMER^S TYPE
     Dosage: UNK
     Route: 048
  14. RIVASTIGMINE. [Suspect]
     Active Substance: RIVASTIGMINE
     Dosage: 6 MG/DAY, ON DAY 10
     Route: 065
  15. RIVASTIGMINE. [Suspect]
     Active Substance: RIVASTIGMINE
     Dosage: 9 MG/DAY, ON DAY 34
     Route: 065
  16. METOPROLOL. [Interacting]
     Active Substance: METOPROLOL
     Dosage: 75 MG/DAY
     Route: 048
  17. CLOPIDOGREL [Concomitant]
     Active Substance: CLOPIDOGREL BISULFATE
     Dosage: 75 MG/DAY
     Route: 048

REACTIONS (5)
  - Gene mutation [Unknown]
  - Drug ineffective [Unknown]
  - Condition aggravated [Recovering/Resolving]
  - Sinus bradycardia [Recovered/Resolved]
  - Drug interaction [Unknown]
